FAERS Safety Report 18628609 (Version 1)
Quarter: 2020Q4

REPORT INFORMATION
  Report Type: Spontaneous
  Country: US (occurrence: US)
  Receive Date: 20201217
  Receipt Date: 20201217
  Transmission Date: 20210114
  Serious: No
  Sender: FDA-Public Use
  Company Number: US-TEVA-2020-US-1859873

PATIENT
  Age: 54 Year
  Sex: Female
  Weight: 65.77 kg

DRUGS (4)
  1. ATORVASTATIN [Concomitant]
     Active Substance: ATORVASTATIN
     Route: 065
  2. FLUOCINONIDE TEVA [Suspect]
     Active Substance: FLUOCINONIDE
     Indication: DERMATITIS PSORIASIFORM
     Route: 065
  3. XELJANZ XR [Concomitant]
     Active Substance: TOFACITINIB CITRATE
     Indication: PSORIATIC ARTHROPATHY
     Route: 065
     Dates: start: 20200220
  4. ESTROGEL MYLAN [Concomitant]
     Indication: HOT FLUSH
     Dosage: 1XWEEK TITRATED ACCORDING TO SYMPTOM COVERAGE NEED
     Route: 065

REACTIONS (1)
  - Drug ineffective [Unknown]
